FAERS Safety Report 11323522 (Version 1)
Quarter: 2015Q3

REPORT INFORMATION
  Report Type: Spontaneous
  Country: US (occurrence: US)
  Receive Date: 20150730
  Receipt Date: 20150730
  Transmission Date: 20151125
  Serious: No
  Sender: FDA-Public Use
  Company Number: US-MYLANLABS-2015M1002824

PATIENT
  Age: 59 Year
  Sex: Female
  Weight: 87.75 kg

DRUGS (3)
  1. MIRTAZAPINE TABLETS, USP [Suspect]
     Active Substance: MIRTAZAPINE
     Indication: DEPRESSION
     Dosage: 15 MG, QD
     Route: 048
     Dates: start: 2014, end: 201501
  2. MIRTAZAPINE TABLETS, USP [Suspect]
     Active Substance: MIRTAZAPINE
     Indication: ANXIETY
  3. KLONOPIN [Concomitant]
     Active Substance: CLONAZEPAM
     Indication: ANXIETY
     Dosage: UNK

REACTIONS (3)
  - Chest discomfort [Recovering/Resolving]
  - Feeling abnormal [Recovering/Resolving]
  - Respiration abnormal [Recovering/Resolving]

NARRATIVE: CASE EVENT DATE: 201412
